FAERS Safety Report 19298656 (Version 1)
Quarter: 2021Q2

REPORT INFORMATION
  Report Type: Spontaneous
  Country: US (occurrence: US)
  Receive Date: 20210525
  Receipt Date: 20210525
  Transmission Date: 20210717
  Serious: No
  Sender: FDA-Public Use
  Company Number: US-ALNYLAM PHARMACEUTICALS, INC.-ALN-2021-001180

PATIENT

DRUGS (1)
  1. ONPATTRO [Suspect]
     Active Substance: PATISIRAN SODIUM
     Indication: PRODUCT USED FOR UNKNOWN INDICATION
     Dosage: 20 MILLIGRAM, Q3W
     Route: 042

REACTIONS (3)
  - Blood pressure decreased [Recovered/Resolved]
  - Vomiting [Recovered/Resolved]
  - Product administration interrupted [Unknown]

NARRATIVE: CASE EVENT DATE: 20210513
